FAERS Safety Report 11835933 (Version 1)
Quarter: 2015Q4

REPORT INFORMATION
  Report Type: Report from Study
  Country: US (occurrence: US)
  Receive Date: 20151215
  Receipt Date: 20151215
  Transmission Date: 20160305
  Serious: Yes (Hospitalization, Other)
  Sender: FDA-Public Use
  Company Number: US-AMGEN-USASL2015127945

PATIENT
  Age: 64 Year
  Sex: Male

DRUGS (1)
  1. KYPROLIS [Suspect]
     Active Substance: CARFILZOMIB
     Indication: NEOPLASM MALIGNANT
     Dosage: UNK, UNK
     Route: 042
     Dates: start: 201511

REACTIONS (5)
  - Glaucoma [Unknown]
  - Heart rate increased [Unknown]
  - Hiatus hernia [Unknown]
  - Asthma [Recovering/Resolving]
  - Neuropathy peripheral [Unknown]

NARRATIVE: CASE EVENT DATE: 2015
